FAERS Safety Report 5763221-1 (Version None)
Quarter: 2008Q2

REPORT INFORMATION
  Report Type: 
  Country: None (occurrence: None)
  Receive Date: 20080609
  Receipt Date: 20080528
  Transmission Date: 20081010
  Serious: Yes (Other)
  Sender: FDA-Public Use
  Company Number: US-PFIZER INC-2008045963

PATIENT
  Sex: Female
  Weight: 65.909 kg

DRUGS (6)
  1. NEURONTIN [Suspect]
     Indication: TRIGEMINAL NEURALGIA
  2. LYRICA [Suspect]
     Indication: TRIGEMINAL NEURALGIA
  3. TIZANIDINE HCL [Suspect]
     Indication: MUSCLE TIGHTNESS
  4. TIZANIDINE HCL [Suspect]
     Indication: HYPERREFLEXIA
  5. TRILEPTAL [Concomitant]
  6. ZOLOFT [Concomitant]

REACTIONS (11)
  - ARTHRALGIA [None]
  - COGNITIVE DISORDER [None]
  - FACIAL PAIN [None]
  - GAIT DISTURBANCE [None]
  - HYPERREFLEXIA [None]
  - HYPOAESTHESIA [None]
  - MENTAL IMPAIRMENT [None]
  - MUSCLE TIGHTNESS [None]
  - OEDEMA PERIPHERAL [None]
  - SOMNOLENCE [None]
  - WEIGHT INCREASED [None]
